FAERS Safety Report 9789936 (Version 2)
Quarter: 2013Q4

REPORT INFORMATION
  Report Type: Spontaneous
  Country: US (occurrence: US)
  Receive Date: 20131231
  Receipt Date: 20131231
  Transmission Date: 20140711
  Serious: Yes (Other)
  Sender: FDA-Public Use
  Company Number: US-JNJFOC-20131206597

PATIENT
  Age: 76 Year
  Sex: Male
  Weight: 77.11 kg

DRUGS (5)
  1. INVOKANA [Suspect]
     Indication: TYPE 2 DIABETES MELLITUS
     Route: 048
     Dates: start: 20131121, end: 20131201
  2. SYNTHROID [Concomitant]
     Indication: HYPOTHYROIDISM
     Dosage: LONG TERM
  3. METFORMIN [Concomitant]
     Indication: TYPE 2 DIABETES MELLITUS
     Dosage: LONG TERM
  4. BENAZEPRIL [Concomitant]
     Indication: HYPERTENSION
     Dosage: LONG TERM
  5. ZOCOR [Concomitant]
     Indication: LIPIDS INCREASED
     Dosage: LONG TERM

REACTIONS (1)
  - Prostatitis [Recovered/Resolved]
